FAERS Safety Report 7964611-9 (Version None)
Quarter: 2011Q4

REPORT INFORMATION
  Report Type: 
  Country: None (occurrence: None)
  Receive Date: 20111121
  Receipt Date: 20111012
  Transmission Date: 20120403
  Serious: No
  Sender: FDA-Public Use
  Company Number: 1000024695

PATIENT
  Age: 60 Year
  Sex: Female

DRUGS (1)
  1. VIIBRYD [Suspect]

REACTIONS (1)
  - DIZZINESS [None]
